FAERS Safety Report 16704900 (Version 1)
Quarter: 2019Q3

REPORT INFORMATION
  Report Type: Report from Study
  Country: None (occurrence: US)
  Receive Date: 20190814
  Receipt Date: 20190814
  Transmission Date: 20191004
  Serious: Yes (Death)
  Sender: FDA-Public Use
  Company Number: US-ABBVIE-19K-163-2888441-00

PATIENT
  Sex: Female
  Weight: 62.65 kg

DRUGS (1)
  1. CREON [Suspect]
     Active Substance: PANCRELIPASE AMYLASE\PANCRELIPASE LIPASE\PANCRELIPASE PROTEASE
     Indication: PANCREATIC FAILURE
     Dosage: TWO CAPSULES WITH MEALS AND ONE WITH A SNACK
     Route: 048
     Dates: start: 201904

REACTIONS (1)
  - Pancreatic mass [Fatal]

NARRATIVE: CASE EVENT DATE: 2019
